FAERS Safety Report 6698430-0 (Version None)
Quarter: 2010Q2

REPORT INFORMATION
  Report Type: 
  Country: None (occurrence: None)
  Receive Date: 20100427
  Receipt Date: 20100416
  Transmission Date: 20101027
  Serious: Yes (Hospitalization)
  Sender: FDA-Public Use
  Company Number: JP-ROCHE-698703

PATIENT
  Age: 68 Year
  Sex: Female

DRUGS (10)
  1. TOCILIZUMAB [Suspect]
     Indication: RHEUMATOID ARTHRITIS
     Route: 041
     Dates: start: 20081031, end: 20081031
  2. TOCILIZUMAB [Suspect]
     Route: 041
     Dates: start: 20081128, end: 20081128
  3. TOCILIZUMAB [Suspect]
     Route: 041
     Dates: start: 20081226, end: 20081226
  4. TOCILIZUMAB [Suspect]
     Route: 041
     Dates: start: 20090123, end: 20090123
  5. TOCILIZUMAB [Suspect]
     Route: 041
     Dates: start: 20090220, end: 20090220
  6. TOCILIZUMAB [Suspect]
     Route: 041
     Dates: start: 20090318, end: 20090318
  7. TOCILIZUMAB [Suspect]
     Route: 041
     Dates: start: 20090417, end: 20100301
  8. PREDNISOLONE [Suspect]
     Indication: RHEUMATOID ARTHRITIS
     Dosage: FORM: PER ORAL AGENT
     Route: 048
     Dates: end: 20081226
  9. PREDNISOLONE [Suspect]
     Dosage: DOSE DECREASED
     Route: 048
     Dates: start: 20081227
  10. ALENDRONATE SODIUM [Concomitant]
     Route: 048

REACTIONS (2)
  - BREAST CANCER [None]
  - UPPER RESPIRATORY TRACT INFLAMMATION [None]
